FAERS Safety Report 16233111 (Version 2)
Quarter: 2020Q3

REPORT INFORMATION
  Report Type: Spontaneous
  Country: US (occurrence: US)
  Receive Date: 20190424
  Receipt Date: 20200717
  Transmission Date: 20201102
  Serious: No
  Sender: FDA-Public Use
  Company Number: US-PFIZER INC-2019170768

PATIENT
  Age: 56 Year
  Sex: Female
  Weight: 59 kg

DRUGS (2)
  1. PAXIL [Suspect]
     Active Substance: PAROXETINE HYDROCHLORIDE
     Dosage: UNK
     Dates: start: 2016, end: 201903
  2. LIPITOR [Suspect]
     Active Substance: ATORVASTATIN CALCIUM
     Dosage: UNK
     Dates: start: 2016, end: 201903

REACTIONS (2)
  - Condition aggravated [Recovering/Resolving]
  - Eczema [Not Recovered/Not Resolved]

NARRATIVE: CASE EVENT DATE: 201810
